FAERS Safety Report 4416276-0 (Version None)
Quarter: 2004Q3

REPORT INFORMATION
  Report Type: 
  Country: None (occurrence: None)
  Receive Date: 20040805
  Receipt Date: 20040726
  Transmission Date: 20050211
  Serious: Yes (Disabling)
  Sender: FDA-Public Use
  Company Number: US-MERCK-0408USA00010

PATIENT
  Age: 87 Year
  Sex: Female

DRUGS (1)
  1. FOSAMAX [Suspect]
     Indication: OSTEOPOROSIS
     Route: 048
     Dates: end: 20040401

REACTIONS (2)
  - DYSPHONIA [None]
  - HOARSENESS [None]
